FAERS Safety Report 10390005 (Version 1)
Quarter: 2014Q3

REPORT INFORMATION
  Report Type: Spontaneous
  Country: IT (occurrence: None)
  Receive Date: 20140813
  Receipt Date: 20140813
  Transmission Date: 20150326
  Serious: Yes (Hospitalization)
  Sender: FDA-Public Use
  Company Number: AUR-APL-2014-08525

PATIENT
  Age: 48 Year
  Sex: Female

DRUGS (1)
  1. AMOXICILLIN 1G (AMOXICILLIN) UNKNOWN, 1G [Suspect]
     Active Substance: AMOXICILLIN
     Indication: PUNCTURE SITE INFECTION
     Dosage: 1 G, TOTAL, ORAL
     Route: 048
     Dates: start: 20140712, end: 20140712

REACTIONS (2)
  - Blood pressure decreased [None]
  - Pharyngeal oedema [None]

NARRATIVE: CASE EVENT DATE: 20140712
